FAERS Safety Report 6766954-3 (Version None)
Quarter: 2010Q2

REPORT INFORMATION
  Report Type: 
  Country: None (occurrence: None)
  Receive Date: 20100611
  Receipt Date: 20100608
  Transmission Date: 20101027
  Serious: Yes (Death)
  Sender: FDA-Public Use
  Company Number: CI-GILEAD-2010-0029704

PATIENT
  Age: 55 Year
  Sex: Male
  Weight: 67 kg

DRUGS (5)
  1. TRUVADA [Suspect]
     Indication: HIV INFECTION
     Route: 048
     Dates: start: 20090930, end: 20091207
  2. SULFAMETHOXAZOLE [Concomitant]
     Indication: OPPORTUNISTIC INFECTION PROPHYLAXIS
     Dates: start: 20090930, end: 20091207
  3. TRIMETHOPRIM [Concomitant]
     Indication: OPPORTUNISTIC INFECTION PROPHYLAXIS
     Dates: start: 20090930, end: 20091207
  4. TERPIN HYDRATE [Concomitant]
     Indication: COUGH
     Dates: start: 20090930, end: 20091014
  5. CODEINE SULFATE [Concomitant]
     Indication: COUGH
     Dates: start: 20090930, end: 20091014

REACTIONS (1)
  - DEATH [None]
